FAERS Safety Report 5119292-9 (Version None)
Quarter: 2006Q3

REPORT INFORMATION
  Report Type: 
  Country: None (occurrence: None)
  Receive Date: 20060928
  Receipt Date: 20060915
  Transmission Date: 20061208
  Serious: Yes (Life-Threatening, Hospitalization, Disabling, Other)
  Sender: FDA-Public Use
  Company Number: 2006112241

PATIENT
  Age: 52 Year
  Sex: Female
  Weight: 136.0791 kg

DRUGS (8)
  1. NEURONTIN [Suspect]
     Indication: ARTHRALGIA
     Dosage: 900 MG (300 MG, 3 IN 1 D), ORAL
     Route: 048
  2. NEURONTIN [Suspect]
     Indication: MUSCLE TWITCHING
     Dosage: 900 MG (300 MG, 3 IN 1 D), ORAL
     Route: 048
  3. NEURONTIN [Suspect]
     Indication: NEUROPATHY PERIPHERAL
     Dosage: 900 MG (300 MG, 3 IN 1 D), ORAL
     Route: 048
  4. LYRICA [Suspect]
     Indication: DEPRESSION
     Dosage: ORAL
     Route: 048
     Dates: start: 20051001, end: 20051101
  5. LEXAPRO [Concomitant]
  6. TRAZODONE HCL [Concomitant]
  7. OXYCONTIN [Concomitant]
  8. XANAX [Concomitant]

REACTIONS (8)
  - DEPRESSION [None]
  - FALL [None]
  - LOSS OF CONSCIOUSNESS [None]
  - NERVOUS SYSTEM DISORDER [None]
  - PSYCHOTIC DISORDER [None]
  - PULMONARY OEDEMA [None]
  - SENSATION OF HEAVINESS [None]
  - WEIGHT INCREASED [None]
